FAERS Safety Report 7455150-2 (Version None)
Quarter: 2011Q2

REPORT INFORMATION
  Report Type: 
  Country: None (occurrence: None)
  Receive Date: 20110503
  Receipt Date: 20110419
  Transmission Date: 20111010
  Serious: Yes (Other)
  Sender: FDA-Public Use
  Company Number: IT-MYLANLABS-2011S1008029

PATIENT
  Age: 62 Year
  Sex: Female

DRUGS (1)
  1. CIPROFLOXACIN [Suspect]
     Indication: BRONCHITIS CHRONIC
     Route: 048
     Dates: start: 20110101, end: 20110101

REACTIONS (3)
  - ERYTHEMA [None]
  - HYPOXIA [None]
  - BRONCHOSPASM [None]
